FAERS Safety Report 8126557-5 (Version None)
Quarter: 2012Q1

REPORT INFORMATION
  Report Type: 
  Country: None (occurrence: None)
  Receive Date: 20120210
  Receipt Date: 20120127
  Transmission Date: 20120608
  Serious: Yes (Other)
  Sender: FDA-Public Use
  Company Number: DE-AMGEN-DEUSP2012000599

PATIENT
  Age: 60 Year
  Sex: Female
  Weight: 60 kg

DRUGS (3)
  1. METHOTREXATE SODIUM [Suspect]
     Dosage: UNK
  2. RANTUDIL [Concomitant]
     Dosage: UNK
  3. ENBREL [Suspect]
     Indication: RHEUMATOID ARTHRITIS
     Dosage: 50 UNK, UNK

REACTIONS (3)
  - BURNING SENSATION [None]
  - TENSION [None]
  - MUSCLE ATROPHY [None]
